FAERS Safety Report 18419636 (Version 1)
Quarter: 2020Q4

REPORT INFORMATION
  Report Type: Spontaneous
  Country: US (occurrence: US)
  Receive Date: 20201023
  Receipt Date: 20201023
  Transmission Date: 20210114
  Serious: Yes (Other)
  Sender: FDA-Public Use
  Company Number: US-PFIZER INC-2020408494

PATIENT
  Age: 34 Year
  Sex: Female

DRUGS (10)
  1. MEPERIDINE HCL [Suspect]
     Active Substance: MEPERIDINE HYDROCHLORIDE
     Indication: PAIN
     Dosage: 750 MG, (DURING THE COURSE OF 33 HOURS, 50MG TO 100MG EVERY 3 TO 4 HOURS)
  2. MEPERIDINE HCL [Suspect]
     Active Substance: MEPERIDINE HYDROCHLORIDE
     Indication: SICKLE CELL ANAEMIA WITH CRISIS
     Dosage: 3070 MG IN 45 HOURS
  3. VANCOMYCIN [Concomitant]
     Active Substance: VANCOMYCIN
     Indication: CELLULITIS
     Dosage: 1000 MG, 2X/DAY
     Route: 042
  4. HYDROXYUREA. [Concomitant]
     Active Substance: HYDROXYUREA
     Dosage: 500 MG, 1X/DAY (EVERY MORNING)
     Route: 048
  5. DOXEPIN [Concomitant]
     Active Substance: DOXEPIN
     Dosage: 10 MG, 3X/DAY
     Route: 048
  6. MEPERIDINE HCL [Suspect]
     Active Substance: MEPERIDINE HYDROCHLORIDE
     Indication: CELLULITIS
  7. PROMETHAZINE [Concomitant]
     Active Substance: PROMETHAZINE HYDROCHLORIDE
     Indication: NAUSEA
     Dosage: 25 MG, EVERY 4 HRS, AS NEEDED
     Route: 042
  8. DEXTROSE AND SODIUM CHLORIDE INJECTION [Concomitant]
     Indication: FLUID REPLACEMENT
     Dosage: 5% DEXTROSE 0.45% SODIUM CHLORIDE AT A RATE OF 125 ML/H
  9. COTRIMOXAZOLE [Concomitant]
     Active Substance: SULFAMETHOXAZOLE\TRIMETHOPRIM
     Indication: CELLULITIS
     Dosage: 240 MG, 2X/DAY
     Route: 048
  10. ACETAMINOPHEN. [Concomitant]
     Active Substance: ACETAMINOPHEN
     Dosage: 650 MG, EVERY 4 HRS
     Route: 048

REACTIONS (2)
  - Loss of consciousness [Recovered/Resolved]
  - Generalised tonic-clonic seizure [Recovered/Resolved]
